FAERS Safety Report 17970287 (Version 1)
Quarter: 2020Q3

REPORT INFORMATION
  Report Type: Report from Study
  Country: DE (occurrence: DE)
  Receive Date: 20200702
  Receipt Date: 20200702
  Transmission Date: 20201103
  Serious: Yes (Death, Hospitalization)
  Sender: FDA-Public Use
  Company Number: DE-BIOGEN-2020BI00892649

PATIENT
  Sex: Female
  Weight: 41 kg

DRUGS (1)
  1. TECFIDERA [Suspect]
     Active Substance: DIMETHYL FUMARATE
     Indication: MULTIPLE SCLEROSIS
     Dosage: MAINTENANCE DOSE
     Route: 048

REACTIONS (6)
  - Overdose [Recovered/Resolved]
  - Volvulus [Recovered/Resolved]
  - Suicide attempt [Recovered/Resolved]
  - Device dislocation [Recovered/Resolved]
  - Malnutrition [Fatal]
  - Feeding disorder [Recovered/Resolved]

NARRATIVE: CASE EVENT DATE: 2015
